FAERS Safety Report 13695200 (Version 2)
Quarter: 2017Q4

REPORT INFORMATION
  Report Type: Spontaneous
  Country: BR (occurrence: BR)
  Receive Date: 20170627
  Receipt Date: 20171128
  Transmission Date: 20180320
  Serious: Yes (Other)
  Sender: FDA-Public Use
  Company Number: BR-PFIZER INC-2017245187

PATIENT
  Age: 54 Year
  Sex: Female

DRUGS (1)
  1. SUTENT [Suspect]
     Active Substance: SUNITINIB MALATE
     Dosage: UNK
     Dates: start: 20170603

REACTIONS (31)
  - Hypothyroidism [Unknown]
  - Burn oral cavity [Unknown]
  - Yellow skin [Unknown]
  - Bronchitis [Unknown]
  - Hypersensitivity [Unknown]
  - Feeding disorder [Unknown]
  - Feeling hot [Unknown]
  - Diarrhoea [Unknown]
  - Vomiting [Unknown]
  - Oral disorder [Unknown]
  - Skin exfoliation [Unknown]
  - Skin sensitisation [Unknown]
  - Aphthous ulcer [Unknown]
  - Dysgeusia [Unknown]
  - Dry skin [Unknown]
  - Blood pressure increased [Unknown]
  - Thyroid disorder [Unknown]
  - Neuropathy peripheral [Unknown]
  - Arthropathy [Unknown]
  - Loss of personal independence in daily activities [Unknown]
  - Mouth injury [Unknown]
  - Acne [Unknown]
  - Hair texture abnormal [Unknown]
  - Nausea [Unknown]
  - Hair colour changes [Unknown]
  - Hypoaesthesia [Unknown]
  - Palmar-plantar erythrodysaesthesia syndrome [Unknown]
  - Pruritus [Unknown]
  - Influenza [Unknown]
  - Feeling abnormal [Unknown]
  - Nasal congestion [Unknown]
